FAERS Safety Report 21484856 (Version 2)
Quarter: 2022Q4

REPORT INFORMATION
  Report Type: Spontaneous
  Country: US (occurrence: None)
  Receive Date: 20221020
  Receipt Date: 20221220
  Transmission Date: 20230112
  Serious: No
  Sender: FDA-Public Use
  Company Number: 2022A343877

PATIENT
  Age: 744 Month
  Sex: Male
  Weight: 77.1 kg

DRUGS (5)
  1. PULMICORT FLEXHALER [Suspect]
     Active Substance: BUDESONIDE
     Indication: Asthma
     Route: 055
     Dates: start: 202207
  2. BENADRYL [Concomitant]
     Active Substance: DIPHENHYDRAMINE HYDROCHLORIDE
     Indication: Asthma
  3. FLONASE [Concomitant]
     Active Substance: FLUTICASONE PROPIONATE
     Indication: Rhinitis allergic
     Dosage: 1 SPRAY TWICE A DAY
  4. ALBUTEROL [Concomitant]
     Active Substance: ALBUTEROL
     Indication: Asthma
     Dosage: 2 PUFFS 3 OR 4 TIMES A DAY
  5. PROVENTIL [Concomitant]
     Active Substance: ALBUTEROL
     Indication: Asthma
     Dosage: INHALER 2 PUFFS 3 OR 4 TIMES A DAY

REACTIONS (8)
  - Respiratory tract congestion [Not Recovered/Not Resolved]
  - Chest discomfort [Not Recovered/Not Resolved]
  - Dust allergy [Not Recovered/Not Resolved]
  - Cough [Not Recovered/Not Resolved]
  - Device use issue [Unknown]
  - Device malfunction [Unknown]
  - Product dose omission issue [Not Recovered/Not Resolved]
  - Device malfunction [Unknown]

NARRATIVE: CASE EVENT DATE: 20220701
